FAERS Safety Report 10390529 (Version 1)
Quarter: 2014Q3

REPORT INFORMATION
  Report Type: Spontaneous
  Country: TN (occurrence: None)
  Receive Date: 20140814
  Receipt Date: 20140814
  Transmission Date: 20150326
  Serious: Yes (Other)
  Sender: FDA-Public Use
  Company Number: VAL_03270_2014

PATIENT
  Age: 25 Year
  Sex: Male

DRUGS (6)
  1. MAXILASE [Concomitant]
     Active Substance: PANCRELIPASE
  2. AMOXICILLIN. [Suspect]
     Active Substance: AMOXICILLIN
     Indication: INFLUENZA
     Dosage: DF
     Dates: start: 201307
  3. LAMICTAL [Concomitant]
     Active Substance: LAMOTRIGINE
  4. PHENOBARBITAL (PHENOBARBITAL) [Suspect]
     Active Substance: PHENOBARBITAL
     Indication: EPILEPSY
     Dosage: DF
     Dates: start: 201009
  5. AUGMENTIN [Suspect]
     Active Substance: AMOXICILLIN\CLAVULANATE POTASSIUM
     Indication: PRODUCT USED FOR UNKNOWN INDICATION
     Dates: start: 201010
  6. CARBAMAZEPINE. [Suspect]
     Active Substance: CARBAMAZEPINE
     Indication: EPILEPSY
     Dosage: DF
     Dates: start: 201206

REACTIONS (5)
  - Cross sensitivity reaction [None]
  - Influenza [None]
  - Drug prescribing error [None]
  - Drug reaction with eosinophilia and systemic symptoms [None]
  - Infectious mononucleosis [None]
